FAERS Safety Report 12437149 (Version 1)
Quarter: 2016Q2

REPORT INFORMATION
  Report Type: Report from Study
  Country: NL (occurrence: NL)
  Receive Date: 20160606
  Receipt Date: 20160606
  Transmission Date: 20160815
  Serious: Yes (Other)
  Sender: FDA-Public Use
  Company Number: NL-AMGEN-NLDSP2016070037

PATIENT
  Age: 68 Year
  Sex: Male

DRUGS (8)
  1. GOSERELINE [Concomitant]
     Active Substance: GOSERELIN
     Dosage: 10.8 MG, QD
     Dates: start: 20150310
  2. BICALUTAMIDE. [Concomitant]
     Active Substance: BICALUTAMIDE
     Dosage: 50 MG, QD
     Dates: start: 20151209, end: 20160308
  3. METOCLOPRAMIDE. [Concomitant]
     Active Substance: METOCLOPRAMIDE
     Dosage: 10 MG, QD
     Dates: start: 20150312
  4. CALCIUMCARBIMIDUM [Concomitant]
     Dosage: 1.25 G, UNK
     Dates: start: 20150312
  5. CARBASALAATCALCIUM [Concomitant]
     Active Substance: CARBASALATE
     Dosage: 100 MG, QD
     Dates: start: 20151223
  6. TAXOTERE [Concomitant]
     Active Substance: DOCETAXEL
     Indication: PROSTATE CANCER METASTATIC
     Dosage: UNK
  7. XGEVA [Suspect]
     Active Substance: DENOSUMAB
     Indication: PROSTATE CANCER METASTATIC
     Dosage: 120 MG, Q4WK
     Route: 058
     Dates: start: 20150313
  8. PREDNISON [Concomitant]
     Active Substance: PREDNISONE
     Dosage: 2.5 MG, QD
     Dates: start: 20150708

REACTIONS (2)
  - Arthralgia [Unknown]
  - Essential thrombocythaemia [Unknown]
